FAERS Safety Report 5256158-8 (Version None)
Quarter: 2007Q1

REPORT INFORMATION
  Report Type: 
  Country: None (occurrence: None)
  Receive Date: 20061204
  Receipt Date: 20060803
  Transmission Date: 20070707
  Serious: No
  Sender: FDA-Public Use
  Company Number: 2006-BP-08943BP

PATIENT
  Sex: Male

DRUGS (6)
  1. SPIRIVA [Suspect]
     Indication: ASTHMA
     Dosage: (18 MCG)
     Dates: start: 20060701
  2. SPIRIVA [Suspect]
     Indication: BRONCHITIS
     Dosage: (18 MCG)
     Dates: start: 20060701
  3. ASMANEX TWISTHALER [Suspect]
  4. COMBIVENT (COMBIVENT /01261001/) [Concomitant]
  5. ALBUTEROL INHALATION  AEROSAL (SALBUTAMOL) [Concomitant]
  6. THEOPHYLLINE (ALL OTHER THERAPEUTIC PRODUCTS) [Concomitant]

REACTIONS (1)
  - BONE PAIN [None]
